FAERS Safety Report 25749782 (Version 1)
Quarter: 2025Q3

REPORT INFORMATION
  Report Type: Spontaneous
  Country: US (occurrence: US)
  Receive Date: 20250902
  Receipt Date: 20250902
  Transmission Date: 20251020
  Serious: No
  Sender: DR REDDYS
  Company Number: US-DRL-USA-USA/2025/08/012824

PATIENT
  Sex: Female

DRUGS (1)
  1. BUPRENORPHINE AND NALOXONE SUBLINGUAL FILM [Suspect]
     Active Substance: BUPRENORPHINE HYDROCHLORIDE\NALOXONE HYDROCHLORIDE
     Indication: Product used for unknown indication

REACTIONS (2)
  - Product packaging quantity issue [Unknown]
  - Incorrect dose administered [Unknown]
